FAERS Safety Report 14355289 (Version 1)
Quarter: 2018Q1

REPORT INFORMATION
  Report Type: Spontaneous
  Country: AR (occurrence: AR)
  Receive Date: 20180105
  Receipt Date: 20180105
  Transmission Date: 20180509
  Serious: Yes (Other)
  Sender: FDA-Public Use
  Company Number: AR-PFIZER INC-2017556078

PATIENT
  Age: 43 Year
  Sex: Female

DRUGS (1)
  1. RONFASE [Suspect]
     Active Substance: ESTRADIOL
     Indication: ENDOMETRIAL DISORDER
     Dosage: 3 DF, DAILY (ONE IN THE MORNING AND 2 AT NIGHT)

REACTIONS (3)
  - Vaginal haemorrhage [Unknown]
  - Uterine cervical exfoliation [Unknown]
  - Product use in unapproved indication [Unknown]
